FAERS Safety Report 19760820 (Version 1)
Quarter: 2021Q3

REPORT INFORMATION
  Report Type: Spontaneous
  Country: US (occurrence: US)
  Receive Date: 20210828
  Receipt Date: 20210828
  Transmission Date: 20211014
  Serious: Yes (Hospitalization)
  Sender: FDA-Public Use
  Company Number: None

PATIENT
  Age: 74 Year
  Sex: Male

DRUGS (1)
  1. REGEN?COV [Suspect]
     Active Substance: CASIRIVIMAB\IMDEVIMAB
     Indication: COVID-19 PNEUMONIA
     Dosage: ?          OTHER FREQUENCY:SINGLE IV INFUSION;?
     Route: 041
     Dates: start: 20210827, end: 20210827

REACTIONS (3)
  - Respiratory failure [None]
  - Chills [None]
  - Asthenia [None]

NARRATIVE: CASE EVENT DATE: 20210827
